FAERS Safety Report 8305293-6 (Version None)
Quarter: 2012Q2

REPORT INFORMATION
  Report Type: 
  Country: None (occurrence: None)
  Receive Date: 20120423
  Receipt Date: 20120416
  Transmission Date: 20120825
  Serious: Yes (Hospitalization)
  Sender: FDA-Public Use
  Company Number: US-TEVA-333829USA

PATIENT
  Age: 67 Year
  Sex: Female

DRUGS (2)
  1. GABAPENTIN [Concomitant]
     Route: 065
  2. OLANZAPINE [Suspect]
     Dosage: 2.5MG QHS
     Route: 065

REACTIONS (4)
  - FALL [None]
  - MYOCLONUS [None]
  - GAIT DISTURBANCE [None]
  - ELECTROENCEPHALOGRAM ABNORMAL [None]
